FAERS Safety Report 5910194-4 (Version None)
Quarter: 2008Q4

REPORT INFORMATION
  Report Type: 
  Country: None (occurrence: None)
  Receive Date: 20081007
  Receipt Date: 20071015
  Transmission Date: 20090506
  Serious: No
  Sender: FDA-Public Use
  Company Number: US-ASTRAZENECA-2007UW23077

PATIENT
  Age: 65 Year
  Sex: Female

DRUGS (4)
  1. ARIMIDEX [Suspect]
     Indication: BREAST CANCER
     Route: 048
  2. ALLEGRA [Concomitant]
     Dosage: 180 ONCE DAILY
  3. SYNTHROID [Concomitant]
  4. NASACORT [Concomitant]

REACTIONS (2)
  - GINGIVAL BLEEDING [None]
  - TOOTH DISORDER [None]
